FAERS Safety Report 6578737-8 (Version None)
Quarter: 2010Q1

REPORT INFORMATION
  Report Type: 
  Country: None (occurrence: None)
  Receive Date: 20100202
  Receipt Date: 20100125
  Transmission Date: 20100710
  Serious: Yes (Hospitalization)
  Sender: FDA-Public Use
  Company Number: 2010SP004937

PATIENT
  Sex: Male

DRUGS (20)
  1. DESLORATADINE [Suspect]
     Indication: DRUG USE FOR UNKNOWN INDICATION
     Dosage: 1 DF;QD;PO
     Route: 048
     Dates: start: 20080709
  2. ROCEPHIN [Suspect]
     Indication: DRUG USE FOR UNKNOWN INDICATION
     Dosage: 2 DF;QD;IV
     Route: 042
     Dates: start: 20080629, end: 20080702
  3. IZILOX (MOXIFLOXACINE) [Suspect]
     Indication: DRUG USE FOR UNKNOWN INDICATION
     Dosage: 1 DF; QD;  IV
     Route: 042
     Dates: start: 20080626, end: 20080702
  4. CLARITHROMYCIN [Suspect]
     Indication: LEGIONELLA INFECTION
     Dosage: 2 DF; QD; IV
     Route: 042
     Dates: start: 20080701, end: 20080714
  5. ACETAMINOPHEN [Suspect]
     Indication: DRUG USE FOR UNKNOWN INDICATION
     Dosage: 4 DF; QD; IV
     Route: 042
     Dates: start: 20080629, end: 20080704
  6. CIFLOX (CIPROFLOXACINE [Suspect]
     Indication: DRUG USE FOR UNKNOWN INDICATION
     Dosage: 3 DF; QD; IV
     Route: 042
     Dates: start: 20080629, end: 20080704
  7. LEVOFLOXACIN [Suspect]
     Indication: LEGIONELLA INFECTION
     Dosage: 2  DF; QD; IV
     Route: 042
     Dates: start: 20080701
  8. LOVENOX [Suspect]
     Indication: DRUG USE FOR UNKNOWN INDICATION
     Dosage: 1  DF; QD; IV
     Route: 042
     Dates: start: 20080705
  9. PIPERACILLIN AND TAZOBACTAM [Suspect]
     Indication: SUPERINFECTION
     Dosage: 4 DF; QD; IV
     Route: 042
     Dates: start: 20080707, end: 20080711
  10. VENOFER [Suspect]
     Indication: DRUG USE FOR UNKNOWN INDICATION
     Dosage: 3 DF; QD; IV
     Route: 042
     Dates: start: 20080711
  11. NEUTRI-FLEX (GLUCOSAMINE FULFATE, HYDROLYZED GELATIN, METHYL SULFONYL [Suspect]
     Indication: DRUG USE FOR UNKNOWN INDICATION
  12. LINEZOLID [Suspect]
     Indication: STAPHYLOCOCCAL INFECTION
     Dosage: 3 DF; QD; IV
     Route: 042
     Dates: start: 20080714
  13. OMEPRAZOLE [Suspect]
     Indication: DRUG USE FOR UNKNOWN INDICATION
     Dosage: 1 DF; QD; IV
     Route: 042
     Dates: start: 20080717
  14. PRIMAXIN [Suspect]
     Indication: PSEUDOMONAS INFECTION
     Dosage: 3  DF; QD; IV
     Route: 042
     Dates: start: 20080718
  15. ACETAMINOPHEN [Suspect]
     Indication: DRUG USE FOR UNKNOWN INDICATION
     Dosage: 4 DF; QD; IV
     Route: 042
     Dates: start: 20080718
  16. INNOHEP [Concomitant]
  17. SUCRALFATE [Concomitant]
  18. SOLU-MEDROL [Concomitant]
  19. TRIFLUCAN [Concomitant]
  20. ATARAX [Concomitant]

REACTIONS (4)
  - CYTOLYTIC HEPATITIS [None]
  - PSEUDOMONAS INFECTION [None]
  - STAPHYLOCOCCAL INFECTION [None]
  - SUPERINFECTION [None]
